FAERS Safety Report 14974743 (Version 5)
Quarter: 2018Q4

REPORT INFORMATION
  Report Type: Report from Study
  Country: GB (occurrence: GB)
  Receive Date: 20180605
  Receipt Date: 20181211
  Transmission Date: 20190204
  Serious: Yes (Death, Other)
  Sender: FDA-Public Use
  Company Number: GB-PFIZER INC-2018227930

PATIENT
  Age: 58 Year
  Sex: Female
  Weight: 54 kg

DRUGS (52)
  1. XANEF /00574902/ [Suspect]
     Active Substance: ENALAPRIL MALEATE
     Dosage: UNK
  2. BEN-U-RON [Suspect]
     Active Substance: ACETAMINOPHEN
     Indication: PYREXIA
     Dosage: UNK
     Route: 054
     Dates: start: 19950117, end: 19950117
  3. METALCAPTASE /00062501/ [Suspect]
     Active Substance: PENICILLAMINE
     Indication: SCLERODERMA
     Dosage: UNK
     Route: 048
     Dates: start: 19941229, end: 19950124
  4. SENNA [Suspect]
     Active Substance: SENNA LEAF\SENNOSIDES\SENNOSIDES A AND B
     Indication: CONSTIPATION
     Dosage: UNK
     Route: 048
     Dates: start: 19950113, end: 19950114
  5. ISOPTIN [Concomitant]
     Active Substance: VERAPAMIL HYDROCHLORIDE
     Indication: ARRHYTHMIA
     Dosage: 3 DF, QD
     Route: 048
     Dates: start: 19941228, end: 19941228
  6. FLUIMUCIL [Suspect]
     Active Substance: ACETYLCYSTEINE
     Dosage: 3 DF, QD
     Route: 048
     Dates: start: 19950120, end: 19950331
  7. ADALAT [Concomitant]
     Active Substance: NIFEDIPINE
     Indication: HYPERTENSION
     Dosage: 1 DF, QD
     Route: 048
     Dates: start: 19941228, end: 19941228
  8. ISOPTIN [Concomitant]
     Active Substance: VERAPAMIL HYDROCHLORIDE
     Dosage: 3 DF, QD
     Route: 048
     Dates: start: 19941229, end: 19950124
  9. NEUPOGEN [Concomitant]
     Active Substance: FILGRASTIM
     Indication: LEUKOPENIA
     Dosage: UNK
     Route: 058
     Dates: start: 19950124, end: 19950124
  10. ZANTAC [Concomitant]
     Active Substance: RANITIDINE HYDROCHLORIDE
     Indication: HYPERSENSITIVITY
     Dosage: UNK
     Route: 042
     Dates: start: 19950117, end: 19950117
  11. TAVEGIL /00137202/ [Concomitant]
     Indication: HYPERSENSITIVITY
     Dosage: UNK
     Route: 042
     Dates: start: 19950117, end: 19950117
  12. ERYTHROCIN /00020901/ [Concomitant]
     Active Substance: ERYTHROMYCIN ETHYLSUCCINATE
     Indication: INFECTION
     Dosage: 2 DF, QD
     Route: 042
     Dates: start: 19950118, end: 19950118
  13. URBASON [Concomitant]
     Active Substance: METHYLPREDNISOLONE
     Indication: SCLERODERMA
     Dosage: UNK
     Route: 048
  14. NOVALGIN (METAMIZOLE SODIUM) [Suspect]
     Active Substance: METAMIZOLE SODIUM
     Dosage: UNK
     Route: 042
     Dates: start: 19941228, end: 19941228
  15. ERYPO /00928302/ [Suspect]
     Active Substance: ERYTHROPOIETIN
     Indication: ANAEMIA
     Dosage: 2000 IU, QD
     Route: 058
     Dates: start: 19950103, end: 19950103
  16. XANEF /00574902/ [Suspect]
     Active Substance: ENALAPRIL MALEATE
     Indication: HYPERTENSION
     Dosage: 1 DF, QD
     Route: 048
     Dates: start: 19941230, end: 19950124
  17. ROHYPNOL [Suspect]
     Active Substance: FLUNITRAZEPAM
     Indication: SLEEP DISORDER
     Dosage: 1 DF, QD
     Route: 048
     Dates: start: 19950114, end: 19950123
  18. TELEBRIX /01047301/ [Suspect]
     Active Substance: MEGLUMINE IOXITHALAMATE\SODIUM IOXITHALAMATE
     Indication: X-RAY
     Dosage: UNK
     Route: 048
     Dates: start: 19950115, end: 19950115
  19. AUGMENTAN /00756801/ [Suspect]
     Active Substance: AMOXICILLIN\CLAVULANATE POTASSIUM
     Indication: INFECTION
     Dosage: 3 DF, QD
     Route: 048
     Dates: start: 19950117, end: 19950117
  20. SOLU-DECORTIN-H LIFE [Concomitant]
     Indication: HYPERSENSITIVITY
     Dosage: UNK
     Route: 042
     Dates: start: 19950117, end: 19950117
  21. SAROTEN [Concomitant]
     Active Substance: AMITRIPTYLINE
     Indication: DEPRESSION
     Dosage: UNK
     Route: 048
     Dates: start: 19950124, end: 19950331
  22. TEMGESIC [Concomitant]
     Active Substance: BUPRENORPHINE HYDROCHLORIDE
     Indication: PAIN
     Dosage: UNK
     Route: 060
     Dates: start: 19950124, end: 19950124
  23. NACL [Concomitant]
     Active Substance: SODIUM CHLORIDE
     Indication: HYPONATRAEMIA
     Dosage: UNK
     Route: 042
     Dates: start: 19950117, end: 19950117
  24. FLUIMUCIL [Suspect]
     Active Substance: ACETYLCYSTEINE
     Indication: COUGH
     Dosage: 3 DF, QD
     Route: 048
     Dates: start: 19950117, end: 19950118
  25. NOVALGIN (METAMIZOLE SODIUM) [Suspect]
     Active Substance: METAMIZOLE SODIUM
     Indication: PYREXIA
     Dosage: UNK
     Route: 042
     Dates: start: 19940228, end: 19940228
  26. ERYPO /00928302/ [Suspect]
     Active Substance: ERYTHROPOIETIN
     Dosage: 2000 IU, QD
     Route: 058
     Dates: start: 19950105, end: 19950105
  27. IMUREK /00001501/ [Suspect]
     Active Substance: AZATHIOPRINE
     Dosage: UNK
     Route: 048
     Dates: start: 19950119, end: 19950119
  28. DIFLUCAN [Concomitant]
     Active Substance: FLUCONAZOLE
     Indication: FUNGAL INFECTION
     Dosage: 200 MG, QD
     Route: 048
     Dates: start: 19950120, end: 19950124
  29. ERYPO /00928302/ [Suspect]
     Active Substance: ERYTHROPOIETIN
     Dosage: 2000 IU, QD
     Route: 058
     Dates: start: 19950107, end: 19950107
  30. ERYPO /00928302/ [Suspect]
     Active Substance: ERYTHROPOIETIN
     Dosage: 2000 IU, QD
     Route: 058
     Dates: start: 19950110, end: 19950110
  31. ASPIRIN (E.C.) [Suspect]
     Active Substance: ASPIRIN
     Indication: ARRHYTHMIA
     Dosage: 1 DF, QD
     Route: 048
  32. MONO-EMBOLEX NM [Concomitant]
     Indication: THROMBOSIS PROPHYLAXIS
     Dosage: 1 DF, QD
     Route: 058
     Dates: end: 19950331
  33. CALCIUM CITRATE [Concomitant]
     Active Substance: CALCIUM CITRATE
     Indication: METABOLIC ACIDOSIS
     Dosage: 4 DF, QD
     Route: 048
     Dates: start: 19950119, end: 19950331
  34. PLACEBO [Suspect]
     Active Substance: UNSPECIFIED INGREDIENT
     Dosage: UNK
     Route: 048
     Dates: start: 19950115, end: 19950115
  35. LASIX [Suspect]
     Active Substance: FUROSEMIDE
     Indication: RENAL FAILURE
     Dosage: 1 DF, QD
     Route: 048
     Dates: start: 19950113, end: 19950331
  36. DULCOLAX (BISACODYL) [Suspect]
     Active Substance: BISACODYL
     Indication: CONSTIPATION
     Dosage: UNK
     Route: 054
     Dates: start: 19950115, end: 19950115
  37. SODIUM CITRATE. [Concomitant]
     Active Substance: SODIUM CITRATE
     Indication: METABOLIC ACIDOSIS
     Dosage: 4 DF, 1X/DAY
     Route: 048
     Dates: start: 19950119, end: 19950331
  38. PEPDUL [Concomitant]
     Active Substance: FAMOTIDINE
     Indication: ULCER
     Dosage: 1 DF, QD
     Route: 048
     Dates: end: 19950117
  39. ARELIX /00630801/ [Concomitant]
     Indication: HYPERTENSION
     Dosage: 1 DF, QD
     Route: 048
     Dates: start: 19941228, end: 19941228
  40. TRAMAL [Concomitant]
     Active Substance: TRAMADOL
     Indication: PAIN
     Dosage: EAR/EYE/NOSE DROPS, SOLUTION
     Dates: start: 19950118, end: 19950121
  41. ERYPO /00928302/ [Suspect]
     Active Substance: ERYTHROPOIETIN
     Dosage: 2000 IU, QD
     Route: 058
     Dates: start: 19950114, end: 19950114
  42. IMUREK /00001501/ [Suspect]
     Active Substance: AZATHIOPRINE
     Indication: SCLERODERMA
     Dosage: UNK
     Route: 048
     Dates: start: 19950113, end: 19950116
  43. LOPIRIN COR [Concomitant]
     Active Substance: CAPTOPRIL
     Indication: HYPERTENSION
     Dosage: 1 DF, QD
     Route: 048
     Dates: start: 19941229, end: 19941229
  44. ANTRA [Concomitant]
     Active Substance: OMEPRAZOLE
     Indication: ULCER
     Dosage: 2 DF, QD
     Route: 048
     Dates: start: 19950118, end: 19950124
  45. IMODIUM [Concomitant]
     Active Substance: LOPERAMIDE HYDROCHLORIDE
     Indication: DIARRHOEA
     Dosage: UNK
     Route: 048
     Dates: start: 19950118, end: 19950119
  46. TAZOBAC [Suspect]
     Active Substance: PIPERACILLIN SODIUM\TAZOBACTAM SODIUM
     Indication: INFECTION
     Dosage: 2 DF, QD
     Route: 042
     Dates: end: 19950101
  47. REMESTAN [Suspect]
     Active Substance: TEMAZEPAM
     Indication: SLEEP DISORDER
     Dosage: 1 DF, QD
     Route: 048
     Dates: end: 19950113
  48. TRENTAL [Suspect]
     Active Substance: PENTOXIFYLLINE
     Indication: CARDIOVASCULAR DISORDER
     Dosage: 1200 MG, QD
     Route: 048
     Dates: start: 19950117, end: 19950124
  49. ERYPO /00928302/ [Suspect]
     Active Substance: ERYTHROPOIETIN
     Dosage: 2000 IU, QD
     Route: 058
     Dates: start: 19950117, end: 19950117
  50. PURSENNIDE /00571901/ [Suspect]
     Active Substance: SENNOSIDES A AND B
     Indication: CONSTIPATION
     Dosage: UNK
     Route: 048
     Dates: start: 19950113, end: 19950114
  51. NATRIUMHYDROGENCARBONAT [Concomitant]
     Active Substance: SODIUM BICARBONATE
     Indication: ACIDOSIS
     Dosage: UNK
     Route: 042
     Dates: start: 19950118, end: 19950118
  52. PASPERTIN /00041902/ [Concomitant]
     Active Substance: METOCLOPRAMIDE HYDROCHLORIDE
     Indication: NAUSEA
     Dosage: EAR/EYE/NOSE DROPS, SOLUTION
     Route: 048
     Dates: start: 19941228, end: 19941228

REACTIONS (14)
  - Blood lactate dehydrogenase increased [Unknown]
  - Renal failure [Fatal]
  - Stevens-Johnson syndrome [Unknown]
  - Pruritus [Unknown]
  - Pneumonia [Unknown]
  - Rash [Unknown]
  - Toxic epidermal necrolysis [Fatal]
  - Blister [Unknown]
  - Blood creatinine increased [Unknown]
  - Blood urea increased [Unknown]
  - Renal failure [Unknown]
  - Brain injury [Fatal]
  - Leukocytosis [Unknown]
  - Lymphocytosis [Unknown]

NARRATIVE: CASE EVENT DATE: 19950117
